FAERS Safety Report 7522962-6 (Version None)
Quarter: 2011Q2

REPORT INFORMATION
  Report Type: 
  Country: None (occurrence: None)
  Receive Date: 20110603
  Receipt Date: 20110601
  Transmission Date: 20111010
  Serious: Yes (Hospitalization, Other)
  Sender: FDA-Public Use
  Company Number: US-BRISTOL-MYERS SQUIBB COMPANY-15796212

PATIENT
  Age: 63 Year
  Sex: Female
  Weight: 104 kg

DRUGS (10)
  1. DOCUSATE SODIUM [Concomitant]
  2. LORAZEPAM [Concomitant]
  3. PROCHLORPERAZINE TAB [Concomitant]
  4. FUROSEMIDE [Concomitant]
  5. IPILIMUMAB [Suspect]
     Indication: MALIGNANT MELANOMA
     Dosage: LAST DOSE:02MAY2011
     Route: 042
     Dates: start: 20110502, end: 20110523
  6. HYDROCODONE BITARTRATE [Concomitant]
     Dosage: 1DF:5/500MG , EVERY 4 HOURS PRN
  7. LISINOPRIL [Concomitant]
  8. ZOLPIDEM [Concomitant]
  9. AMLODIPINE [Concomitant]
  10. ASPIRIN [Concomitant]

REACTIONS (2)
  - DYSPNOEA [None]
  - HYPONATRAEMIA [None]
